FAERS Safety Report 19729749 (Version 2)
Quarter: 2021Q3

REPORT INFORMATION
  Report Type: Spontaneous
  Country: GB (occurrence: GB)
  Receive Date: 20210821
  Receipt Date: 20210825
  Transmission Date: 20211014
  Serious: Yes (Other)
  Sender: FDA-Public Use
  Company Number: GB-UCBSA-2021038720

PATIENT
  Age: 54 Year
  Sex: Male

DRUGS (1)
  1. KEPPRA [Suspect]
     Active Substance: LEVETIRACETAM
     Indication: SEIZURE
     Dosage: 7 MILLILITER, 2X/DAY (BID)

REACTIONS (4)
  - Dementia [Unknown]
  - Hypophagia [Unknown]
  - Hypersomnia [Unknown]
  - General physical health deterioration [Unknown]
